FAERS Safety Report 9438886 (Version 2)
Quarter: 2013Q4

REPORT INFORMATION
  Report Type: Report from Study
  Country: US (occurrence: US)
  Receive Date: 20130802
  Receipt Date: 20131001
  Transmission Date: 20140711
  Serious: Yes (Death, Hospitalization, Other)
  Sender: FDA-Public Use
  Company Number: US-ALEXION PHARMACEUTICALS INC.-A201301727

PATIENT
  Age: 54 Year
  Sex: Female

DRUGS (1)
  1. SOLIRIS [Suspect]
     Indication: HAEMOLYTIC URAEMIC SYNDROME
     Dosage: NOT SPECIFIED
     Route: 042

REACTIONS (4)
  - Pulseless electrical activity [Fatal]
  - Pulmonary embolism [Unknown]
  - Pancreatitis acute [Unknown]
  - Dialysis [Unknown]
